FAERS Safety Report 5165908-0 (Version None)
Quarter: 2006Q4

REPORT INFORMATION
  Report Type: 
  Country: None (occurrence: None)
  Receive Date: 20061128
  Receipt Date: 20061116
  Transmission Date: 20070319
  Serious: Yes (Other)
  Sender: FDA-Public Use
  Company Number: US-2006-029482

PATIENT
  Age: 27 Year
  Sex: Female
  Weight: 88 kg

DRUGS (2)
  1. MIRENA [Suspect]
     Indication: MENORRHAGIA
     Dosage: 20 UG/DAY, CONT, INTRA-UTERINE
     Route: 015
     Dates: start: 20030401
  2. PAIN MEDICATION [Concomitant]

REACTIONS (9)
  - ABDOMINAL PAIN [None]
  - AMENORRHOEA [None]
  - BACK PAIN [None]
  - BREAST PAIN [None]
  - MENORRHAGIA [None]
  - MUSCLE SPASMS [None]
  - OVARIAN CYST [None]
  - POLYMENORRHOEA [None]
  - SURGERY [None]
